FAERS Safety Report 5273052-7 (Version None)
Quarter: 2007Q1

REPORT INFORMATION
  Report Type: 
  Country: None (occurrence: None)
  Receive Date: 20070322
  Receipt Date: 20070307
  Transmission Date: 20070707
  Serious: Yes (Hospitalization, Other)
  Sender: FDA-Public Use
  Company Number: US-PFIZER INC-2006121995

PATIENT
  Sex: Male

DRUGS (3)
  1. CELEBREX [Suspect]
     Dates: start: 20030101, end: 20040801
  2. BEXTRA [Suspect]
     Indication: PAIN
     Dates: start: 20030601, end: 20030801
  3. VIOXX [Suspect]
     Dates: start: 20000523, end: 20040930

REACTIONS (1)
  - CEREBROVASCULAR ACCIDENT [None]
